FAERS Safety Report 7595437-6 (Version None)
Quarter: 2011Q3

REPORT INFORMATION
  Report Type: 
  Country: None (occurrence: None)
  Receive Date: 20110707
  Receipt Date: 20110621
  Transmission Date: 20111222
  Serious: No
  Sender: FDA-Public Use
  Company Number: US-B.I. PHARMACEUTICALS,INC./RIDGEFIELD-2011-BP-15974BP

PATIENT
  Sex: Male

DRUGS (18)
  1. NITROGLYCERIN [Concomitant]
     Indication: CHEST PAIN
     Route: 048
  2. LIPTIOR [Concomitant]
     Indication: BLOOD CHOLESTEROL INCREASED
     Dosage: 40 MG
     Route: 048
  3. TRICOR [Concomitant]
     Indication: BLOOD CHOLESTEROL INCREASED
     Dosage: 145 MG
     Route: 048
  4. ONGLYZA [Concomitant]
     Indication: DIABETES MELLITUS
     Dosage: 5 MG
     Route: 048
  5. LANTUS [Concomitant]
     Indication: DIABETES MELLITUS
     Dosage: 75 RT
     Route: 058
  6. VITAMIN D [Concomitant]
     Dosage: 1000 MG
     Route: 048
  7. COZAAR [Concomitant]
     Dosage: 200 MG
     Route: 048
  8. CYMBALTA [Concomitant]
     Indication: DEPRESSION
     Dosage: 60 MG
     Route: 048
  9. NASONEX [Concomitant]
     Route: 048
  10. ALDACTONE [Concomitant]
     Indication: CARDIAC FAILURE CONGESTIVE
     Route: 048
  11. CLONAZEPAM [Concomitant]
     Indication: ANXIETY
     Route: 048
  12. PRADAXA [Suspect]
     Indication: ATRIAL FIBRILLATION
     Dosage: 300 MG
     Route: 048
     Dates: start: 20110602
  13. AMBIEN [Concomitant]
     Indication: INSOMNIA
     Dosage: 5 MG
     Route: 048
  14. NORCO [Concomitant]
     Indication: ARTHRITIS
     Route: 048
  15. GLYBURIDE [Concomitant]
     Indication: DIABETES MELLITUS
     Dosage: 2.5 MG
     Route: 048
  16. DIGOXIN [Concomitant]
     Indication: CARDIAC FAILURE CONGESTIVE
     Dosage: 0.125 MG
     Route: 048
  17. ISOSORBIDE [Concomitant]
     Indication: CARDIAC FAILURE CONGESTIVE
     Dosage: 60 MG
     Route: 048
  18. POTASSIUM CHLORIDE [Concomitant]
     Dosage: 10 MEQ
     Route: 048

REACTIONS (1)
  - BLOOD GLUCOSE INCREASED [None]
